FAERS Safety Report 8597086-X (Version None)
Quarter: 2012Q3

REPORT INFORMATION
  Report Type: 
  Country: None (occurrence: None)
  Receive Date: 20120816
  Receipt Date: 20120806
  Transmission Date: 20120928
  Serious: Yes (Hospitalization)
  Sender: FDA-Public Use
  Company Number: US-BIOGENIDEC-2012BI018116

PATIENT
  Age: 58 Year
  Sex: Female

DRUGS (3)
  1. INTERFERON BETA-1A [Suspect]
     Indication: MULTIPLE SCLEROSIS
     Route: 030
     Dates: start: 19980409
  2. INTERFERON BETA-1A [Suspect]
     Route: 030
     Dates: start: 20120419
  3. INTERFERON BETA-1A [Suspect]
     Route: 030
     Dates: start: 20000313

REACTIONS (1)
  - INTRACRANIAL ANEURYSM [None]
